FAERS Safety Report 10961653 (Version 1)
Quarter: 2015Q1

REPORT INFORMATION
  Report Type: Spontaneous
  Country: GB (occurrence: GB)
  Receive Date: 20150327
  Receipt Date: 20150327
  Transmission Date: 20150721
  Serious: Yes (Other)
  Sender: FDA-Public Use
  Company Number: PHHY2015GB032776

PATIENT
  Age: 62 Year
  Sex: Female
  Weight: 70 kg

DRUGS (1)
  1. TELMISARTAN. [Suspect]
     Active Substance: TELMISARTAN
     Indication: HYPERTENSION
     Dosage: 40 MG, QD
     Route: 048
     Dates: start: 20150123, end: 20150303

REACTIONS (4)
  - Hot flush [Recovering/Resolving]
  - Drug ineffective [Unknown]
  - Feeling hot [Recovering/Resolving]
  - Urine odour abnormal [Recovering/Resolving]

NARRATIVE: CASE EVENT DATE: 20150127
